FAERS Safety Report 18589494 (Version 1)
Quarter: 2020Q4

REPORT INFORMATION
  Report Type: Spontaneous
  Country: ES (occurrence: ES)
  Receive Date: 20201208
  Receipt Date: 20201208
  Transmission Date: 20210114
  Serious: Yes (Other)
  Sender: FDA-Public Use
  Company Number: ES-LUPIN PHARMACEUTICALS INC.-2020-09937

PATIENT
  Age: 43 Year
  Sex: Female

DRUGS (1)
  1. CLOBETASOL [Suspect]
     Active Substance: CLOBETASOL
     Indication: IMMUNOGLOBULIN G4 RELATED DISEASE
     Dosage: UNK UNK, BID, CREAM
     Route: 061

REACTIONS (1)
  - Therapy non-responder [Unknown]
